FAERS Safety Report 9715260 (Version 2)
Quarter: 2013Q4

REPORT INFORMATION
  Report Type: Report from Study
  Country: US (occurrence: US)
  Receive Date: 20131126
  Receipt Date: 20131126
  Transmission Date: 20140711
  Serious: Yes (Death)
  Sender: FDA-Public Use
  Company Number: US-ROCHE-1301328

PATIENT
  Sex: Male

DRUGS (2)
  1. CELLCEPT [Suspect]
     Indication: MYASTHENIA GRAVIS
     Route: 048
  2. CELLCEPT [Suspect]
     Route: 048

REACTIONS (3)
  - Death [Fatal]
  - Treatment noncompliance [Unknown]
  - Confusional state [Unknown]
